FAERS Safety Report 12225182 (Version 1)
Quarter: 2016Q1

REPORT INFORMATION
  Report Type: Spontaneous
  Country: US (occurrence: None)
  Receive Date: 20160330
  Receipt Date: 20160330
  Transmission Date: 20160526
  Serious: Yes (Other)
  Sender: FDA-Public Use
  Company Number: None

PATIENT
  Age: 69 Year
  Sex: Female
  Weight: 48.99 kg

DRUGS (6)
  1. MELOXICAM. [Concomitant]
     Active Substance: MELOXICAM
  2. BUTAL/ACETAMN/CF 50-325/40 TAB [Suspect]
     Active Substance: ACETAMINOPHEN\BUTABARBITAL\CAFFEINE
     Indication: MIGRAINE
     Dosage: ONE TO TWO PILLS EVERY 6 HOURS BY MOUTH
     Route: 048
     Dates: start: 20160305, end: 20160306
  3. ACYCLOVIR. [Concomitant]
     Active Substance: ACYCLOVIR
  4. LUNESTA [Concomitant]
     Active Substance: ESZOPICLONE
  5. BUSPIRONE [Concomitant]
     Active Substance: BUSPIRONE HYDROCHLORIDE
  6. TEMAZAPAM [Concomitant]

REACTIONS (1)
  - Epigastric discomfort [None]

NARRATIVE: CASE EVENT DATE: 20160303
